FAERS Safety Report 7480889-2 (Version None)
Quarter: 2011Q2

REPORT INFORMATION
  Report Type: 
  Country: None (occurrence: None)
  Receive Date: 20110506
  Receipt Date: 20110421
  Transmission Date: 20111010
  Serious: Yes (Hospitalization, Other)
  Sender: FDA-Public Use
  Company Number: 030674

PATIENT
  Sex: Female
  Weight: 70 kg

DRUGS (5)
  1. CIMZIA [Suspect]
     Indication: RHEUMATOID ARTHRITIS
     Dosage: 400 MG SINGLE DOSE SUBCUTANEOUS
     Route: 058
     Dates: start: 20110320, end: 20110320
  2. PREDNISONE [Concomitant]
  3. METOJECT /00113801/ [Concomitant]
  4. ZEFFIX [Concomitant]
  5. RIFAMPIN AND ISONIAZID [Concomitant]

REACTIONS (1)
  - DERMATITIS ALLERGIC [None]
